FAERS Safety Report 7638197-2 (Version None)
Quarter: 2011Q3

REPORT INFORMATION
  Report Type: 
  Country: None (occurrence: None)
  Receive Date: 20110720
  Receipt Date: 20110704
  Transmission Date: 20111222
  Serious: Yes (Other)
  Sender: FDA-Public Use
  Company Number: AUR-APL-2011-03573

PATIENT
  Age: 87 Year
  Sex: Female

DRUGS (10)
  1. CALCIUM (CALCIUM) [Concomitant]
  2. CANDESARTAN CILEXETIL [Concomitant]
  3. FUROSEMIDE [Concomitant]
  4. BISOPROLOL FUMARATE [Concomitant]
  5. ALENDRONATE SODIUM [Concomitant]
  6. ASPIRIN [Concomitant]
  7. TERBINAFINE HCL [Suspect]
     Indication: INTERTRIGO CANDIDA
     Dosage: 250 MG (250 MG, 1 IN 1 D), ORAL
     Route: 048
  8. WARFARIN SODIUM [Concomitant]
  9. OMEPRAZOLE [Concomitant]
  10. LOPERAMIDE [Concomitant]

REACTIONS (4)
  - NEUTROPHIL COUNT INCREASED [None]
  - RASH PUSTULAR [None]
  - C-REACTIVE PROTEIN INCREASED [None]
  - WHITE BLOOD CELL COUNT INCREASED [None]
